FAERS Safety Report 17275235 (Version 5)
Quarter: 2020Q3

REPORT INFORMATION
  Report Type: Spontaneous
  Country: JP (occurrence: JP)
  Receive Date: 20200116
  Receipt Date: 20200819
  Transmission Date: 20201102
  Serious: Yes (Other)
  Sender: FDA-Public Use
  Company Number: JP-TAKEDA-2019TJP030149

PATIENT
  Age: 35 Year
  Sex: Female
  Weight: 57.8 kg

DRUGS (11)
  1. PREDNISOLONE. [Suspect]
     Active Substance: PREDNISOLONE
     Indication: COLITIS ULCERATIVE
     Dosage: 7.5 MILLIGRAM, BID
     Route: 048
     Dates: start: 20190905, end: 201912
  2. HOCHUEKKITO                        /07973001/ [Concomitant]
     Active Substance: HERBALS
     Dosage: 2.5 GRAM, TID
     Route: 048
     Dates: start: 20200120
  3. ENTYVIO [Suspect]
     Active Substance: VEDOLIZUMAB
     Indication: COLITIS ULCERATIVE
     Dosage: 300 MILLIGRAM
     Route: 041
     Dates: start: 20191011, end: 20200120
  4. LIALDA [Suspect]
     Active Substance: MESALAMINE
     Indication: COLITIS ULCERATIVE
     Dosage: 2400 MILLIGRAM, BID
     Route: 048
     Dates: start: 20170628
  5. NEXIUM [Concomitant]
     Active Substance: ESOMEPRAZOLE MAGNESIUM
     Indication: PRODUCT USED FOR UNKNOWN INDICATION
     Dosage: 20 MILLIGRAM, QD
     Route: 048
     Dates: start: 20190905
  6. LOXOPROFEN SODIUM [Concomitant]
     Active Substance: LOXOPROFEN SODIUM
     Indication: HEADACHE
     Dosage: 60 MILLIGRAM
     Route: 048
  7. MIYA?BM [Concomitant]
     Active Substance: CLOSTRIDIUM BUTYRICUM SPORES STRAIN M-55
     Indication: GASTROINTESTINAL DISORDER
     Dosage: 2 DOSAGE FORM, TID
     Route: 048
     Dates: start: 20191122
  8. LUNESTA [Concomitant]
     Active Substance: ESZOPICLONE
     Indication: INSOMNIA
     Dosage: 2 MILLIGRAM, QD
     Route: 065
  9. CEREKINON [Concomitant]
     Active Substance: TRIMEBUTINE
     Indication: ABDOMINAL PAIN
     Dosage: 100 MILLIGRAM, TID
     Route: 048
     Dates: start: 20191227, end: 20200110
  10. PREDNISOLONE. [Suspect]
     Active Substance: PREDNISOLONE
     Dosage: 15 MILLIGRAM, BID
     Route: 048
     Dates: start: 20200316
  11. BUDESONIDE. [Suspect]
     Active Substance: BUDESONIDE
     Indication: COLITIS ULCERATIVE
     Dosage: UNK, BID
     Route: 054
     Dates: start: 20190805

REACTIONS (6)
  - Rash [Unknown]
  - Alopecia [Recovered/Resolved]
  - Fall [Unknown]
  - Colitis ulcerative [Not Recovered/Not Resolved]
  - Radius fracture [Recovered/Resolved]
  - Anaemia [Not Recovered/Not Resolved]

NARRATIVE: CASE EVENT DATE: 201910
